FAERS Safety Report 6613724-2 (Version None)
Quarter: 2010Q1

REPORT INFORMATION
  Report Type: 
  Country: None (occurrence: None)
  Receive Date: 20100225
  Receipt Date: 20100217
  Transmission Date: 20100710
  Serious: Yes (Death)
  Sender: FDA-Public Use
  Company Number: WAES 1001USA00888

PATIENT
  Age: 41 Year
  Sex: Male

DRUGS (6)
  1. ISENTRESS [Suspect]
     Indication: HIV INFECTION
     Dosage: 400 MG/BID, PO
     Route: 048
     Dates: start: 20070924, end: 20100104
  2. EPIVIR [Suspect]
     Indication: HIV INFECTION
     Dosage: 40 MG/DAILY, PO
     Route: 048
     Dates: start: 20060823, end: 20100104
  3. NORVIR [Suspect]
     Indication: HIV INFECTION
     Dosage: 100 MG/BID, PO
     Route: 048
     Dates: start: 20070924, end: 20100104
  4. PREZISTA [Suspect]
     Indication: HIV INFECTION
     Dosage: 600 MG/BID, PO
     Route: 048
     Dates: start: 20070924, end: 20100104
  5. NOVACT M [Concomitant]
  6. ZERIT [Concomitant]

REACTIONS (2)
  - BRAIN STEM HAEMORRHAGE [None]
  - PNEUMONIA [None]
